FAERS Safety Report 24184453 (Version 2)
Quarter: 2024Q3

REPORT INFORMATION
  Report Type: Spontaneous
  Country: US (occurrence: US)
  Receive Date: 20240807
  Receipt Date: 20240923
  Transmission Date: 20241017
  Serious: Yes (Hospitalization, Other)
  Sender: PFIZER
  Company Number: US-PFIZER INC-PV202400102311

PATIENT
  Age: 54 Year
  Sex: Female
  Weight: 65.306 kg

DRUGS (3)
  1. XELJANZ [Suspect]
     Active Substance: TOFACITINIB CITRATE
     Indication: Rheumatoid arthritis
     Dosage: 5 MG, 2 TIMES A DAY
     Route: 048
     Dates: start: 20240612, end: 20240711
  2. DULOXETINE [Concomitant]
     Active Substance: DULOXETINE
     Indication: Pain
     Dosage: 60 MG, DAILY
  3. METHYLPREDNISOLONE [Concomitant]
     Active Substance: METHYLPREDNISOLONE
     Indication: Juvenile idiopathic arthritis
     Dosage: 12 MG, DAILY

REACTIONS (2)
  - Sepsis [Recovering/Resolving]
  - Joint arthroplasty [Unknown]

NARRATIVE: CASE EVENT DATE: 20240701
